FAERS Safety Report 16369847 (Version 1)
Quarter: 2019Q2

REPORT INFORMATION
  Report Type: Spontaneous
  Country: SE (occurrence: SE)
  Receive Date: 20190530
  Receipt Date: 20190530
  Transmission Date: 20190711
  Serious: Yes (Hospitalization)
  Sender: FDA-Public Use
  Company Number: SE-TEVA-2019-SE-1056501

PATIENT
  Age: 76 Year
  Sex: Male

DRUGS (12)
  1. ENALAPRIL [Concomitant]
     Active Substance: ENALAPRIL
  2. VOXRA [Concomitant]
     Active Substance: BUPROPION HYDROCHLORIDE
  3. LOPERAMID [Concomitant]
     Active Substance: LOPERAMIDE
  4. CALCICHEW-D3 CITRON [Concomitant]
  5. EDRONAX [Concomitant]
     Active Substance: REBOXETINE MESYLATE
  6. RANITIDIN [Concomitant]
     Active Substance: RANITIDINE HYDROCHLORIDE
  7. MEMANTINE. [Concomitant]
     Active Substance: MEMANTINE
  8. ALVEDON [Concomitant]
     Active Substance: ACETAMINOPHEN
  9. EMGESAN [Concomitant]
     Active Substance: MAGNESIUM HYDROXIDE
  10. ALIMEMAZIN [Concomitant]
  11. QUETIAPIN [Concomitant]
     Active Substance: QUETIAPINE
  12. STESOLID [Suspect]
     Active Substance: DIAZEPAM
     Indication: ALCOHOL ABUSE

REACTIONS (2)
  - Depressed level of consciousness [Recovering/Resolving]
  - Somnolence [Recovering/Resolving]

NARRATIVE: CASE EVENT DATE: 20190330
